FAERS Safety Report 6640256-8 (Version None)
Quarter: 2010Q1

REPORT INFORMATION
  Report Type: 
  Country: None (occurrence: None)
  Receive Date: 20100318
  Receipt Date: 20100310
  Transmission Date: 20100710
  Serious: Yes (Death)
  Sender: FDA-Public Use
  Company Number: JP-BAXTER-2010BH006642

PATIENT
  Age: 83 Year
  Sex: Male

DRUGS (3)
  1. DIANEAL LOW CALCIUM W/ DEXTROSE 1.5% [Suspect]
     Indication: RENAL FAILURE
     Route: 033
     Dates: start: 20080714
  2. DIANEAL 137 W/ DEXTROSE 2.5% IN PLASTIC CONTAINER [Suspect]
     Indication: RENAL FAILURE
     Route: 033
  3. EXTRANEAL [Suspect]
     Indication: RENAL FAILURE
     Route: 033

REACTIONS (1)
  - CARDIAC FAILURE [None]
